FAERS Safety Report 13959853 (Version 6)
Quarter: 2017Q4

REPORT INFORMATION
  Report Type: Spontaneous
  Country: GB (occurrence: GB)
  Receive Date: 20170912
  Receipt Date: 20171112
  Transmission Date: 20180320
  Serious: Yes (Death, Hospitalization, Other)
  Sender: FDA-Public Use
  Company Number: GB-TEVA-803944ACC

PATIENT
  Age: 7 Year
  Sex: Male
  Weight: 23 kg

DRUGS (7)
  1. ACTINOMYCIN D [Suspect]
     Active Substance: DACTINOMYCIN
     Indication: SARCOMA METASTATIC
  2. CYCLOPHOSPHAMIDE. [Suspect]
     Active Substance: CYCLOPHOSPHAMIDE
     Indication: SARCOMA METASTATIC
  3. CYCLOPHOSPHAMIDE. [Suspect]
     Active Substance: CYCLOPHOSPHAMIDE
     Indication: EPITHELIOID SARCOMA
     Route: 065
     Dates: start: 20170728
  4. XALKORI [Suspect]
     Active Substance: CRIZOTINIB
     Indication: EPITHELIOID SARCOMA METASTATIC
     Dosage: 250 MILLIGRAM DAILY;
     Route: 048
     Dates: start: 20170811
  5. VINCRISTINE SULFATE. [Suspect]
     Active Substance: VINCRISTINE SULFATE
     Indication: SARCOMA METASTATIC
  6. VINCRISTINE SULFATE. [Suspect]
     Active Substance: VINCRISTINE SULFATE
     Indication: EPITHELIOID SARCOMA
     Route: 065
     Dates: start: 20170728
  7. ACTINOMYCIN D [Suspect]
     Active Substance: DACTINOMYCIN
     Indication: EPITHELIOID SARCOMA
     Route: 065
     Dates: start: 20170728

REACTIONS (10)
  - Hypoxia [Unknown]
  - Multiple organ dysfunction syndrome [Fatal]
  - Ascites [Unknown]
  - Acidosis [Unknown]
  - Haemofiltration [Unknown]
  - Sepsis [Unknown]
  - Pleural effusion [Unknown]
  - Neoplasm progression [Unknown]
  - Off label use [Unknown]
  - Systemic candida [Unknown]

NARRATIVE: CASE EVENT DATE: 20170809
